FAERS Safety Report 16110724 (Version 1)
Quarter: 2019Q1

REPORT INFORMATION
  Report Type: Spontaneous
  Country: IT (occurrence: IT)
  Receive Date: 20190325
  Receipt Date: 20190325
  Transmission Date: 20190418
  Serious: Yes (Other)
  Sender: FDA-Public Use
  Company Number: PHHY2019IT064404

PATIENT
  Age: 56 Year
  Sex: Male

DRUGS (2)
  1. PARACETAMOL [Suspect]
     Active Substance: ACETAMINOPHEN
     Dosage: 1 DF, UNK
     Route: 048
     Dates: start: 20190224
  2. PARACETAMOL [Suspect]
     Active Substance: ACETAMINOPHEN
     Indication: PYREXIA
     Dosage: 1 DF, UNK
     Route: 048

REACTIONS (1)
  - Retrograde amnesia [Not Recovered/Not Resolved]

NARRATIVE: CASE EVENT DATE: 20190224
